FAERS Safety Report 6907344-X (Version None)
Quarter: 2010Q3

REPORT INFORMATION
  Report Type: 
  Country: None (occurrence: None)
  Receive Date: 20100802
  Receipt Date: 20100723
  Transmission Date: 20110219
  Serious: Yes (Other)
  Sender: FDA-Public Use
  Company Number: WAES 1007USA03237

PATIENT
  Sex: Male

DRUGS (15)
  1. CRIXIVAN [Suspect]
     Dosage: UNK; PO
     Route: 048
  2. COMBIVIR [Suspect]
  3. FORTOVASE [Suspect]
  4. HELTOVIR (LAMIVUDINE) [Suspect]
  5. KALETRA [Suspect]
  6. TAB KIVEKA (ABACAVIR SULFATE (+) LAMIVUDINE) [Suspect]
  7. NORVIR [Suspect]
  8. RETROVIR [Suspect]
  9. REYATAZ [Suspect]
  10. SUSTIVA [Suspect]
  11. TRUVADA [Suspect]
  12. VIDEX [Suspect]
  13. VIRACEPT [Suspect]
  14. ZERIT [Suspect]
  15. ZIAGEN [Suspect]

REACTIONS (14)
  - ABDOMINAL PAIN [None]
  - ABNORMAL DREAMS [None]
  - BLOOD CHOLESTEROL INCREASED [None]
  - CONFUSIONAL STATE [None]
  - DEPRESSION [None]
  - DIARRHOEA [None]
  - FATIGUE [None]
  - HEADACHE [None]
  - INSOMNIA [None]
  - LIPODYSTROPHY ACQUIRED [None]
  - NAUSEA [None]
  - NEUROPATHY PERIPHERAL [None]
  - OSTEOPOROSIS [None]
  - RENAL DISORDER [None]
